FAERS Safety Report 9239578 (Version 3)
Quarter: 2013Q2

REPORT INFORMATION
  Report Type: Spontaneous
  Country: US (occurrence: US)
  Receive Date: 20130418
  Receipt Date: 20130624
  Transmission Date: 20140414
  Serious: Yes (Life-Threatening, Other)
  Sender: FDA-Public Use
  Company Number: US-ROXANE LABORATORIES, INC.-2013-RO-00516RO

PATIENT
  Age: 94 Year
  Sex: Female
  Weight: 54 kg

DRUGS (1)
  1. CILOSTAZOL [Suspect]
     Indication: ARTERIOSCLEROSIS
     Dosage: 200 MG
     Dates: start: 20130327, end: 20130328

REACTIONS (7)
  - Apparent life threatening event [Unknown]
  - Dizziness [Unknown]
  - Nausea [Unknown]
  - Asthenia [Unknown]
  - Activities of daily living impaired [Unknown]
  - Drug ineffective [Unknown]
  - Product quality issue [Unknown]
